FAERS Safety Report 9392812 (Version 1)
Quarter: 2013Q3

REPORT INFORMATION
  Report Type: Spontaneous
  Country: US (occurrence: None)
  Receive Date: 20130708
  Receipt Date: 20130708
  Transmission Date: 20140515
  Serious: Yes (Other)
  Sender: FDA-Public Use
  Company Number: None

PATIENT
  Age: 87 Year
  Sex: Male
  Weight: 65.77 kg

DRUGS (2)
  1. PREDNISONE [Suspect]
     Indication: TEMPORAL ARTERITIS
     Route: 048
     Dates: start: 20130529, end: 20130625
  2. PREDNISONE [Suspect]
     Indication: TEMPORAL ARTERITIS
     Route: 048
     Dates: start: 20130529, end: 20130625

REACTIONS (3)
  - Agitation [None]
  - Depression [None]
  - Hallucination [None]
